FAERS Safety Report 17542857 (Version 1)
Quarter: 2020Q1

REPORT INFORMATION
  Report Type: Report from Study
  Country: None (occurrence: CA)
  Receive Date: 20200315
  Receipt Date: 20200315
  Transmission Date: 20200409
  Serious: Yes (Other)
  Sender: FDA-Public Use
  Company Number: CA-ABBVIE-19K-028-2791758-00

PATIENT
  Sex: Female

DRUGS (1)
  1. HUMIRA [Suspect]
     Active Substance: ADALIMUMAB
     Indication: COLITIS ULCERATIVE
     Route: 058
     Dates: start: 20181115

REACTIONS (4)
  - Weight increased [Not Recovered/Not Resolved]
  - Drug ineffective [Unknown]
  - Pyoderma gangrenosum [Not Recovered/Not Resolved]
  - Neoplasm skin [Not Recovered/Not Resolved]
